FAERS Safety Report 20951774 (Version 3)
Quarter: 2023Q4

REPORT INFORMATION
  Report Type: Report from Study
  Country: US (occurrence: US)
  Receive Date: 20220613
  Receipt Date: 20231215
  Transmission Date: 20240110
  Serious: Yes (Other)
  Sender: FDA-Public Use
  Company Number: US-TAKEDA-US202006961

PATIENT
  Sex: Female

DRUGS (1)
  1. HUMAN IMMUNOGLOBULIN G [Suspect]
     Active Substance: HUMAN IMMUNOGLOBULIN G
     Indication: Primary immunodeficiency syndrome
     Dosage: UNK
     Route: 042

REACTIONS (8)
  - Rheumatoid arthritis [Unknown]
  - Kidney infection [Unknown]
  - Impaired gastric emptying [Unknown]
  - Weight decreased [Unknown]
  - Gastrointestinal infection [Unknown]
  - Gastrointestinal disorder [Unknown]
  - Product supply issue [Unknown]
  - Inappropriate schedule of product administration [Unknown]
